FAERS Safety Report 9572539 (Version 1)
Quarter: 2013Q3

REPORT INFORMATION
  Report Type: Spontaneous
  Country: US (occurrence: None)
  Receive Date: 20130930
  Receipt Date: 20130930
  Transmission Date: 20140515
  Serious: Yes (Hospitalization)
  Sender: FDA-Public Use
  Company Number: None

PATIENT
  Age: 67 Year
  Sex: Male
  Weight: 96.3 kg

DRUGS (1)
  1. ATENOLOL [Suspect]
     Indication: HYPERTENSION
     Route: 048
     Dates: start: 20130920, end: 20130921

REACTIONS (9)
  - Hypercalcaemia [None]
  - Constipation [None]
  - Hypokalaemia [None]
  - Haemodilution [None]
  - Renal failure acute [None]
  - Nephrosclerosis [None]
  - Renal cyst [None]
  - Bradycardia [None]
  - Electrocardiogram PR prolongation [None]
